FAERS Safety Report 5877277-9 (Version None)
Quarter: 2008Q3

REPORT INFORMATION
  Report Type: 
  Country: None (occurrence: None)
  Receive Date: 20080908
  Receipt Date: 20080825
  Transmission Date: 20090109
  Serious: Yes (Hospitalization)
  Sender: FDA-Public Use
  Company Number: 000701

PATIENT
  Age: 2 Year
  Sex: Female

DRUGS (10)
  1. BUSULFEX [Suspect]
     Indication: STEM CELL TRANSPLANT
     Dosage: 7.5 ML, UNK, INTRAVENOUS, 10 ML, DAILY DOSE; INTRAVEOUS, 2.5 ML, DAILY DOSE; INTRAVENOUS
     Route: 042
     Dates: start: 20071118, end: 20071118
  2. BUSULFEX [Suspect]
     Indication: STEM CELL TRANSPLANT
     Dosage: 7.5 ML, UNK, INTRAVENOUS, 10 ML, DAILY DOSE; INTRAVEOUS, 2.5 ML, DAILY DOSE; INTRAVENOUS
     Route: 042
     Dates: start: 20071119, end: 20071121
  3. BUSULFEX [Suspect]
     Indication: STEM CELL TRANSPLANT
     Dosage: 7.5 ML, UNK, INTRAVENOUS, 10 ML, DAILY DOSE; INTRAVEOUS, 2.5 ML, DAILY DOSE; INTRAVENOUS
     Route: 042
     Dates: start: 20071122, end: 20071122
  4. MELPHALAN (MELPHALAN) [Concomitant]
  5. VALPROATE SODIUM [Concomitant]
  6. FILGRATIM (FILGRASTIM) [Concomitant]
  7. METHOTREXATE [Concomitant]
  8. CYCLOSPORINE [Concomitant]
  9. TACROLIMUS [Concomitant]
  10. PREDNISONE [Concomitant]

REACTIONS (4)
  - ACUTE GRAFT VERSUS HOST DISEASE [None]
  - FEBRILE NEUTROPENIA [None]
  - STOMATITIS [None]
  - VENOOCCLUSIVE LIVER DISEASE [None]
